FAERS Safety Report 25350007 (Version 1)
Quarter: 2025Q2

REPORT INFORMATION
  Report Type: Spontaneous
  Country: US (occurrence: US)
  Receive Date: 20250523
  Receipt Date: 20250523
  Transmission Date: 20250717
  Serious: No
  Sender: Kenvue
  Company Number: US-KENVUE-20250407219

PATIENT
  Age: 87 Year
  Sex: Female

DRUGS (2)
  1. TYLENOL [Suspect]
     Active Substance: ACETAMINOPHEN
     Indication: Erythema
     Route: 065
     Dates: start: 202504
  2. NEUTROGENA RAPID WRINKLE REPAIR RETINOL REGENERATING CREAM [Concomitant]
     Indication: Skin wrinkling
     Dosage: UNK, ONCE A DAY
     Route: 061
     Dates: start: 20250315

REACTIONS (1)
  - Product use in unapproved indication [Unknown]

NARRATIVE: CASE EVENT DATE: 20250401
